FAERS Safety Report 8621617-4 (Version None)
Quarter: 2012Q3

REPORT INFORMATION
  Report Type: 
  Country: None (occurrence: None)
  Receive Date: 20120820
  Receipt Date: 20120820
  Transmission Date: 20120928
  Serious: Yes (Hospitalization)
  Sender: FDA-Public Use
  Company Number: None

PATIENT
  Sex: Male
  Weight: 105.9 kg

DRUGS (3)
  1. CYCLOPHOSPHAMIDE [Suspect]
     Dosage: 1290 MG
  2. PENTOSTATIN [Suspect]
     Dosage: 8.6 MG
  3. RITUIXMAB (MOAB C2B8 ANTI CD20, CHIMERIC) [Suspect]
     Dosage: 806 MG

REACTIONS (1)
  - BLOOD URIC ACID INCREASED [None]
